FAERS Safety Report 8918936 (Version 2)
Quarter: 2013Q3

REPORT INFORMATION
  Report Type: Spontaneous
  Country: US (occurrence: US)
  Receive Date: 20121121
  Receipt Date: 20130809
  Transmission Date: 20140515
  Serious: Yes (Death, Hospitalization)
  Sender: FDA-Public Use
  Company Number: US-OPTIMER-20120158

PATIENT
  Sex: 0

DRUGS (6)
  1. DIFICID [Suspect]
     Indication: CLOSTRIDIUM DIFFICILE COLITIS
     Dosage: UNK
     Dates: start: 201109, end: 201109
  2. DIFICID [Suspect]
     Dosage: 200 MG, BID
     Route: 048
     Dates: start: 201111, end: 201111
  3. DIFICID [Suspect]
     Dosage: UNK
     Dates: start: 201211
  4. COREG [Concomitant]
     Indication: CARDIAC DISORDER
     Dosage: UNK, BID
     Route: 048
  5. LASIX [Concomitant]
     Dosage: UNK
     Route: 048
  6. ALDACTONE [Concomitant]
     Indication: HEPATIC CIRRHOSIS
     Dosage: UNK
     Route: 048

REACTIONS (5)
  - Multi-organ failure [Fatal]
  - Hip fracture [Recovered/Resolved]
  - Cellulitis [Not Recovered/Not Resolved]
  - Clostridium difficile colitis [Not Recovered/Not Resolved]
  - Disease recurrence [Not Recovered/Not Resolved]
